FAERS Safety Report 18203323 (Version 2)
Quarter: 2020Q4

REPORT INFORMATION
  Report Type: Spontaneous
  Country: DE (occurrence: DE)
  Receive Date: 20200827
  Receipt Date: 20201116
  Transmission Date: 20210113
  Serious: Yes (Death, Hospitalization)
  Sender: FDA-Public Use
  Company Number: DE-VERITY PHARMACEUTICALS, INC.-2020VTY00445

PATIENT
  Age: 79 Year
  Sex: Male
  Weight: 84 kg

DRUGS (6)
  1. VALSARTAN/HCT 320/25 [Concomitant]
     Indication: HYPERTENSION
     Dosage: 1 DOSAGE FORMS
  2. SIMVASTATIN 40 [Concomitant]
     Active Substance: SIMVASTATIN
     Indication: HYPERLIPIDAEMIA
     Dosage: 1 DOSAGE FORMS
  3. TRIPTORELIN PAMOATE [Suspect]
     Active Substance: TRIPTORELIN PAMOATE
     Indication: PROSTATE CANCER
     Dosage: 1 DOSAGE FORMS
     Route: 065
  4. AMLODIPINE 10 [Concomitant]
     Indication: HYPERTENSION
     Dosage: 1 DOSAGE FORMS
  5. MOXONIDIN 0.2 [Concomitant]
     Active Substance: MOXONIDINE
     Indication: HYPERTENSION
     Dosage: 1 DOSAGE FORMS
  6. BICALUTAMIDE. [Concomitant]
     Active Substance: BICALUTAMIDE
     Indication: PROSTATE CANCER
     Dosage: 1 DOSAGE FORMS

REACTIONS (10)
  - Resuscitation [Fatal]
  - Nausea [Fatal]
  - Acute kidney injury [Fatal]
  - Acute myocardial infarction [Fatal]
  - Vomiting [Fatal]
  - Hypotension [Fatal]
  - Hypokalaemia [Fatal]
  - Gastrointestinal haemorrhage [Fatal]
  - Acidosis [Fatal]
  - Electrolyte imbalance [Fatal]

NARRATIVE: CASE EVENT DATE: 202006
